FAERS Safety Report 5910115-4 (Version None)
Quarter: 2008Q4

REPORT INFORMATION
  Report Type: 
  Country: None (occurrence: None)
  Receive Date: 20081007
  Receipt Date: 20071016
  Transmission Date: 20090506
  Serious: No
  Sender: FDA-Public Use
  Company Number: US-ASTRAZENECA-2007UW22079

PATIENT
  Age: 18115 Day
  Sex: Female
  Weight: 65.8 kg

DRUGS (3)
  1. ARIMIDEX [Suspect]
     Indication: BREAST CANCER
     Route: 048
     Dates: start: 20070801
  2. PAXIL [Concomitant]
  3. CODEINE SUL TAB [Concomitant]
     Indication: VOMITING

REACTIONS (7)
  - ALOPECIA [None]
  - BONE PAIN [None]
  - GASTRIC DISORDER [None]
  - MADAROSIS [None]
  - OEDEMA PERIPHERAL [None]
  - PARAESTHESIA [None]
  - WEIGHT INCREASED [None]
